FAERS Safety Report 8941885 (Version 1)
Quarter: 2012Q4

REPORT INFORMATION
  Report Type: 
  Country: ES (occurrence: ES)
  Receive Date: 20121203
  Receipt Date: 20121203
  Transmission Date: 20130627
  Serious: Yes (Hospitalization)
  Sender: FDA-Public Use
  Company Number: ES-ELI_LILLY_AND_COMPANY-ES201211007057

PATIENT
  Sex: Male

DRUGS (2)
  1. FORSTEO [Suspect]
     Indication: OSTEOPOROSIS
     Dosage: 20 ug, qd
     Dates: start: 201204, end: 201211
  2. FORSTEO [Suspect]
     Dosage: 20 ug, qd
     Dates: start: 201211

REACTIONS (1)
  - Diverticulitis intestinal haemorrhagic [Unknown]
